FAERS Safety Report 23942393 (Version 1)
Quarter: 2024Q2

REPORT INFORMATION
  Report Type: Spontaneous
  Country: US (occurrence: US)
  Receive Date: 20240605
  Receipt Date: 20240605
  Transmission Date: 20240715
  Serious: No
  Sender: FDA-Public Use
  Company Number: US-REGENERON PHARMACEUTICALS, INC.-2024-063745

PATIENT
  Age: 81 Year
  Sex: Female

DRUGS (2)
  1. EYLEA HD [Suspect]
     Active Substance: AFLIBERCEPT
     Indication: Product used for unknown indication
     Dosage: 8MG, Q8W (EVERY 8 WEEKS); FORMULATION: HD VIAL
     Route: 031
  2. EYLEA HD [Suspect]
     Active Substance: AFLIBERCEPT
     Dosage: 8MG, EVERY 10 WEEKS; FORMULATION: HD VIAL
     Route: 031

REACTIONS (1)
  - Eye discharge [Unknown]
